FAERS Safety Report 14775308 (Version 4)
Quarter: 2018Q2

REPORT INFORMATION
  Report Type: Spontaneous
  Country: US (occurrence: US)
  Receive Date: 20180418
  Receipt Date: 20180612
  Transmission Date: 20180711
  Serious: No
  Sender: FDA-Public Use
  Company Number: US-009507513-1804USA006277

PATIENT
  Age: 15 Year
  Sex: Female

DRUGS (1)
  1. NEXPLANON [Suspect]
     Active Substance: ETONOGESTREL
     Dosage: 1 IMPLANT
     Route: 059
     Dates: start: 201702, end: 20180417

REACTIONS (3)
  - Pregnancy test false positive [Unknown]
  - Weight decreased [Unknown]
  - Human chorionic gonadotropin negative [Unknown]

NARRATIVE: CASE EVENT DATE: 20180428
